FAERS Safety Report 13668708 (Version 2)
Quarter: 2017Q3

REPORT INFORMATION
  Report Type: Report from Study
  Country: FR (occurrence: FR)
  Receive Date: 20170620
  Receipt Date: 20170705
  Transmission Date: 20171127
  Serious: Yes (Other)
  Sender: FDA-Public Use
  Company Number: FR-PFIZER INC-2017253440

PATIENT
  Age: 69 Year
  Sex: Female
  Weight: 61.5 kg

DRUGS (6)
  1. NOXAFIL [Concomitant]
     Active Substance: POSACONAZOLE
     Dosage: 300 MG, DAILY
     Route: 048
     Dates: end: 20170605
  2. MYLOTARG [Suspect]
     Active Substance: GEMTUZUMAB OZOGAMICIN
     Indication: ACUTE MYELOID LEUKAEMIA
     Dosage: 4.9 MG, CYCLIC  (ON D1 AND D4)
     Dates: start: 20170523
  3. CYTARABINE. [Suspect]
     Active Substance: CYTARABINE
     Indication: ACUTE MYELOID LEUKAEMIA
     Dosage: 324 MG PER DAY, CYCLIC (FROM D1 TO D7)
     Dates: start: 20170523
  4. CANCIDAS [Concomitant]
     Active Substance: CASPOFUNGIN ACETATE
     Dosage: 50 MG, DAILY
  5. NOXAFIL [Concomitant]
     Active Substance: POSACONAZOLE
     Indication: ANTIFUNGAL PROPHYLAXIS
     Dosage: 600 MG, DAILY
     Route: 048
     Dates: start: 20170524
  6. CANCIDAS [Concomitant]
     Active Substance: CASPOFUNGIN ACETATE
     Indication: PYREXIA
     Dosage: 70 MG, DAILY
     Dates: start: 20170604

REACTIONS (3)
  - Cardio-respiratory arrest [Not Recovered/Not Resolved]
  - Vomiting [Not Recovered/Not Resolved]
  - Loss of consciousness [Not Recovered/Not Resolved]

NARRATIVE: CASE EVENT DATE: 20170607
